FAERS Safety Report 9385701 (Version 1)
Quarter: 2013Q3

REPORT INFORMATION
  Report Type: Spontaneous
  Country: US (occurrence: US)
  Receive Date: 20130705
  Receipt Date: 20130705
  Transmission Date: 20140515
  Serious: Yes (Hospitalization, Other)
  Sender: FDA-Public Use
  Company Number: US-ABBOTT-13P-163-1112896-00

PATIENT
  Sex: Female
  Weight: 65.83 kg

DRUGS (10)
  1. HUMIRA [Suspect]
     Indication: CROHN^S DISEASE
     Dates: start: 2011, end: 2012
  2. CIMZIA [Suspect]
     Indication: CROHN^S DISEASE
     Dates: start: 2012
  3. REMICADE [Suspect]
     Indication: CROHN^S DISEASE
  4. PRILOSEC [Concomitant]
     Indication: GASTROOESOPHAGEAL REFLUX DISEASE
  5. LOMOTIL [Concomitant]
     Indication: DIARRHOEA
  6. ZOFRAN [Concomitant]
     Indication: NAUSEA
  7. POTASSIUM [Concomitant]
     Indication: PRODUCT USED FOR UNKNOWN INDICATION
  8. VITAMIN B12 [Concomitant]
     Indication: PRODUCT USED FOR UNKNOWN INDICATION
  9. LEVOTHYROXIN [Concomitant]
     Indication: THYROID DISORDER
  10. COUMADIN [Concomitant]
     Indication: PULMONARY EMBOLISM

REACTIONS (9)
  - Thrombosis [Recovered/Resolved]
  - Local swelling [Recovered/Resolved]
  - Large intestinal ulcer [Unknown]
  - Abdominal adhesions [Unknown]
  - Large intestinal stenosis [Unknown]
  - Abdominal pain [Not Recovered/Not Resolved]
  - Haematochezia [Not Recovered/Not Resolved]
  - Diarrhoea [Not Recovered/Not Resolved]
  - Crohn^s disease [Unknown]
